FAERS Safety Report 12278742 (Version 2)
Quarter: 2016Q2

REPORT INFORMATION
  Report Type: Spontaneous
  Country: US (occurrence: US)
  Receive Date: 20160418
  Receipt Date: 20160527
  Transmission Date: 20160815
  Serious: Yes (Other)
  Sender: FDA-Public Use
  Company Number: US-ASTRAZENECA-2016SE38627

PATIENT
  Age: 29686 Day
  Sex: Female
  Weight: 55.3 kg

DRUGS (3)
  1. SYMBICORT [Suspect]
     Active Substance: BUDESONIDE\FORMOTEROL FUMARATE DIHYDRATE
     Indication: CHRONIC OBSTRUCTIVE PULMONARY DISEASE
     Dosage: 160/4.5 MICROGRAMS TWO INHALATIONS TWICE PER DAY
     Route: 055
     Dates: start: 20160314
  2. OXYGEN. [Concomitant]
     Active Substance: OXYGEN
     Dosage: 2.0L CONTINUOUSLY
     Route: 045
     Dates: start: 20160130
  3. SYMBICORT [Suspect]
     Active Substance: BUDESONIDE\FORMOTEROL FUMARATE DIHYDRATE
     Indication: CHRONIC OBSTRUCTIVE PULMONARY DISEASE
     Dosage: 160/4.5 MICROGRAMS 120 INHALATIONS, TWO TIMES A DAY, 160
     Route: 055
     Dates: start: 2014

REACTIONS (4)
  - Weight decreased [Recovered/Resolved]
  - Fall [Recovered/Resolved]
  - Fractured sacrum [Recovered/Resolved]
  - Product quality issue [Unknown]

NARRATIVE: CASE EVENT DATE: 20151101
